FAERS Safety Report 7763360-X (Version None)
Quarter: 2011Q3

REPORT INFORMATION
  Report Type: 
  Country: None (occurrence: None)
  Receive Date: 20110920
  Receipt Date: 20110908
  Transmission Date: 20111222
  Serious: Yes (Other)
  Sender: FDA-Public Use
  Company Number: US-ELI_LILLY_AND_COMPANY-US201109002573

PATIENT
  Sex: Female

DRUGS (1)
  1. FORTEO [Suspect]
     Indication: OSTEOPOROSIS
     Dosage: 20 UG, QD
     Route: 065
     Dates: start: 20110828

REACTIONS (5)
  - LOSS OF CONSCIOUSNESS [None]
  - ELECTROLYTE IMBALANCE [None]
  - CONFUSIONAL STATE [None]
  - DEHYDRATION [None]
  - MALAISE [None]
